FAERS Safety Report 20163334 (Version 2)
Quarter: 2022Q1

REPORT INFORMATION
  Report Type: Spontaneous
  Country: CN (occurrence: CN)
  Receive Date: 20211209
  Receipt Date: 20220302
  Transmission Date: 20220423
  Serious: Yes (Other)
  Sender: FDA-Public Use
  Company Number: CN-JNJFOC-20211165530

PATIENT
  Age: 73 Year
  Sex: Male
  Weight: 51 kg

DRUGS (2)
  1. CHILDRENS MOTRIN [Suspect]
     Active Substance: IBUPROFEN
     Indication: Pyrexia
     Route: 048
     Dates: start: 20211119, end: 20211119
  2. CEFPROZIL [Concomitant]
     Active Substance: CEFPROZIL
     Indication: Pyrexia
     Dosage: TABLETS 2 TABLETS TID PO
     Route: 048
     Dates: start: 20211119, end: 20211120

REACTIONS (4)
  - Blister [Recovering/Resolving]
  - Eyelid oedema [Recovering/Resolving]
  - Rash erythematous [Recovering/Resolving]
  - Lacrimation increased [Recovering/Resolving]

NARRATIVE: CASE EVENT DATE: 20211120
